FAERS Safety Report 6082215-2 (Version None)
Quarter: 2009Q1

REPORT INFORMATION
  Report Type: 
  Country: None (occurrence: None)
  Receive Date: 20090218
  Receipt Date: 20090213
  Transmission Date: 20090719
  Serious: Yes (Other)
  Sender: FDA-Public Use
  Company Number: B0559219A

PATIENT
  Age: 11 Year
  Sex: Male

DRUGS (6)
  1. RELENZA [Suspect]
     Indication: INFLUENZA
     Dosage: 10MG TWICE PER DAY
     Route: 055
     Dates: start: 20090207, end: 20090209
  2. CALONAL [Concomitant]
     Route: 065
  3. MEIACT [Concomitant]
     Route: 048
  4. MUCOSOLVAN [Concomitant]
     Route: 048
  5. ALLEGRA [Concomitant]
     Route: 048
  6. HUSTAZOL [Concomitant]
     Route: 048

REACTIONS (4)
  - ABNORMAL BEHAVIOUR [None]
  - AGGRESSION [None]
  - INAPPROPRIATE AFFECT [None]
  - NAUSEA [None]
